FAERS Safety Report 19743428 (Version 9)
Quarter: 2023Q4

REPORT INFORMATION
  Report Type: Spontaneous
  Country: FR (occurrence: FR)
  Receive Date: 20210825
  Receipt Date: 20231221
  Transmission Date: 20240110
  Serious: Yes (Death, Hospitalization)
  Sender: FDA-Public Use
  Company Number: FR-ROCHE-2876132

PATIENT
  Age: 74 Year
  Sex: Female
  Weight: 54 kg

DRUGS (42)
  1. GEMZAR [Suspect]
     Active Substance: GEMCITABINE HYDROCHLORIDE
     Indication: Product used for unknown indication
     Dosage: UNK UNK, UNKNOWN
     Route: 065
  2. PEMETREXED [Suspect]
     Active Substance: PEMETREXED
     Indication: Product used for unknown indication
     Dosage: UNK, UNKNOWN
     Route: 065
     Dates: start: 20191218
  3. ATEZOLIZUMAB [Suspect]
     Active Substance: ATEZOLIZUMAB
     Indication: Lung cancer metastatic
     Dosage: 1200 MG, OTHER (EVERY 3 WEEKS)
     Route: 042
     Dates: start: 20190806
  4. FILGRASTIM [Concomitant]
     Active Substance: FILGRASTIM
     Indication: Product used for unknown indication
     Dosage: UNK
     Dates: start: 20200112, end: 20200116
  5. VERAPAMIL HYDROCHLORIDE [Concomitant]
     Active Substance: VERAPAMIL HYDROCHLORIDE
     Indication: Product used for unknown indication
     Dosage: UNK, DAILY
     Dates: start: 20191116
  6. LOVENOX [Concomitant]
     Active Substance: ENOXAPARIN SODIUM
     Indication: Prophylaxis
     Dosage: UNK, DAILY
     Dates: start: 20191115, end: 20191125
  7. LOVENOX [Concomitant]
     Active Substance: ENOXAPARIN SODIUM
     Dosage: UNK, DAILY
     Route: 065
     Dates: start: 20191227, end: 20200105
  8. PACLITAXEL [Concomitant]
     Active Substance: PACLITAXEL
     Indication: Neoplasm malignant
     Dosage: 142 MG
     Dates: start: 20200207
  9. CARBOPLATIN [Concomitant]
     Active Substance: CARBOPLATIN
     Indication: Neoplasm malignant
     Dosage: 486 MG
  10. ATROVENT [Concomitant]
     Active Substance: IPRATROPIUM BROMIDE
     Indication: Product used for unknown indication
     Dosage: UNK, DAILY
     Dates: start: 20191008
  11. ERYTHROPOIETIN [Concomitant]
     Active Substance: ERYTHROPOIETIN
     Indication: Product used for unknown indication
     Dosage: UNK, DAILY
     Dates: start: 20191029
  12. ERYTHROPOIETIN [Concomitant]
     Active Substance: ERYTHROPOIETIN
     Dosage: UNK, WEEKLY (1/W)
     Dates: start: 20200430
  13. MIDAZOLAM [Concomitant]
     Active Substance: MIDAZOLAM
     Indication: Prophylaxis
     Dosage: UNK, DAILY
     Dates: start: 20191212, end: 20191212
  14. EMEND [Concomitant]
     Active Substance: APREPITANT
     Indication: Prophylaxis
     Dosage: UNK, DAILY
     Dates: start: 20191218
  15. CEFOTAXIME [Concomitant]
     Active Substance: CEFOTAXIME SODIUM
     Indication: Product used for unknown indication
     Dosage: UNK, 0.33 PER DAY
     Route: 065
     Dates: start: 20191116, end: 20191120
  16. VERAPAMIL [Concomitant]
     Active Substance: VERAPAMIL HYDROCHLORIDE
     Indication: Product used for unknown indication
     Dosage: UNK, DAILY
  17. LOPERAMIDE [Concomitant]
     Active Substance: LOPERAMIDE
     Indication: Prophylaxis
     Dosage: UNK, DAILY
     Route: 065
     Dates: start: 20190806
  18. PREDNISOLONE [Concomitant]
     Active Substance: PREDNISOLONE
     Indication: Product used for unknown indication
     Dosage: UNK, DAILY
     Route: 065
     Dates: start: 20191008
  19. SMECTA [Concomitant]
     Active Substance: MONTMORILLONITE
     Indication: Product used for unknown indication
     Dosage: UNK, UNKNOWN
     Dates: start: 20200109
  20. ATORVASTATIN [Concomitant]
     Active Substance: ATORVASTATIN
     Indication: Product used for unknown indication
     Dosage: UNK, DAILY
     Dates: start: 20191116
  21. BRICANYL [Concomitant]
     Active Substance: TERBUTALINE SULFATE
     Indication: Product used for unknown indication
     Dosage: UNK, DAILY
     Dates: start: 20191008
  22. KARDEGIC [Concomitant]
     Active Substance: ASPIRIN DL-LYSINE
     Indication: Prophylaxis
     Dosage: UNK, DAILY
  23. TOPLEXIL [OXOMEMAZINE] [Concomitant]
     Indication: Product used for unknown indication
     Dosage: UNK, UNKNOWN
     Dates: start: 20191008, end: 201912
  24. ATOVAQUONE [Concomitant]
     Active Substance: ATOVAQUONE
     Indication: Prophylaxis
     Dosage: UNK, 0.5 PER DAY
     Route: 065
     Dates: start: 20191116, end: 201912
  25. ARANESP [Concomitant]
     Active Substance: DARBEPOETIN ALFA
     Indication: Product used for unknown indication
     Dosage: UNK UNK, MONTHLY (1/M)
     Dates: start: 20190709, end: 20191008
  26. IPRATROPIUM [Concomitant]
     Active Substance: IPRATROPIUM
     Indication: Product used for unknown indication
     Dosage: UNK, DAILY
     Dates: start: 20191115
  27. GEMCITABINE [Concomitant]
     Active Substance: GEMCITABINE
     Indication: Product used for unknown indication
     Dosage: UNK
     Dates: start: 20191008, end: 20191105
  28. ONDANSETRON [Concomitant]
     Active Substance: ONDANSETRON
     Indication: Prophylaxis
     Dosage: UNK, DAILY
     Route: 065
     Dates: start: 20191218
  29. WHOLE BLOOD [Concomitant]
     Active Substance: WHOLE BLOOD
     Indication: Product used for unknown indication
     Dosage: UNK, DAILY
     Dates: start: 20191120, end: 20191120
  30. PANTOPRAZOLE [Concomitant]
     Active Substance: PANTOPRAZOLE
     Indication: Product used for unknown indication
     Dosage: UNK UNK, DAILY
     Route: 065
     Dates: start: 20191227
  31. PANTOPRAZOLE [Concomitant]
     Active Substance: PANTOPRAZOLE
     Dosage: UNK UNK, DAILY
     Dates: start: 20191019, end: 20191021
  32. PHLOROGLUCINOL DIHYDRATE [Concomitant]
     Active Substance: PHLOROGLUCINOL DIHYDRATE
     Indication: Product used for unknown indication
     Dosage: UNK
     Dates: start: 20190827, end: 20190917
  33. POTASSIUM CHLORIDE [Concomitant]
     Active Substance: POTASSIUM CHLORIDE
     Indication: Product used for unknown indication
     Dosage: UNK, 0.33 PER DAY
     Route: 065
     Dates: start: 20191230, end: 20200104
  34. TAHOR [Concomitant]
     Active Substance: ATORVASTATIN CALCIUM
     Indication: Product used for unknown indication
     Dosage: UNK
  35. SOLUPRED [PREDNISOLONE METASULFOBENZOATE SODI [Concomitant]
     Indication: Product used for unknown indication
     Dosage: UNK, DAILY
     Dates: start: 20191008
  36. IMODIUM [Concomitant]
     Active Substance: LOPERAMIDE HYDROCHLORIDE
     Indication: Prophylaxis
     Dosage: UNK, DAILY
     Dates: start: 20190806
  37. EUPANTOL [Concomitant]
     Active Substance: PANTOPRAZOLE SODIUM
     Indication: Prophylaxis
     Dosage: UNK, DAILY
     Dates: start: 20191019, end: 20191021
  38. EUPANTOL [Concomitant]
     Active Substance: PANTOPRAZOLE SODIUM
     Dosage: UNK UNK, DAILY
     Dates: start: 20191227
  39. CLARITHROMYCIN [Concomitant]
     Active Substance: CLARITHROMYCIN
     Indication: Product used for unknown indication
     Dosage: UNK, 0.5 DAY
     Dates: start: 20191116, end: 20191120
  40. SPASFON [PHLOROGLUCINOL;TRIMETHYLPHLOROGLUCIN [Concomitant]
     Indication: Product used for unknown indication
     Dosage: UNK
     Dates: start: 20190827, end: 20190917
  41. AMOXICILLIN [Concomitant]
     Active Substance: AMOXICILLIN
     Indication: Product used for unknown indication
     Dosage: UNK, 0.5 DAY
     Dates: start: 20191116
  42. DARBEPOETIN ALFA [Concomitant]
     Active Substance: DARBEPOETIN ALFA
     Indication: Product used for unknown indication
     Dosage: UNK
     Dates: start: 20190709, end: 20231008

REACTIONS (9)
  - Death [Fatal]
  - Pneumonitis [Recovered/Resolved]
  - Febrile neutropenia [Recovered/Resolved]
  - Pyrexia [Recovered/Resolved]
  - Diarrhoea [Recovered/Resolved]
  - Abdominal pain [Recovered/Resolved]
  - Cough [Not Recovered/Not Resolved]
  - Vulvovaginal mycotic infection [Recovered/Resolved]
  - Anaemia [Recovered/Resolved]

NARRATIVE: CASE EVENT DATE: 20190827
